FAERS Safety Report 9365478 (Version 1)
Quarter: 2013Q2

REPORT INFORMATION
  Report Type: Spontaneous
  Country: US (occurrence: US)
  Receive Date: 20130625
  Receipt Date: 20130625
  Transmission Date: 20140414
  Serious: Yes (Other)
  Sender: FDA-Public Use
  Company Number: US-ROCHE-1174687

PATIENT
  Sex: Female

DRUGS (8)
  1. PEGASYS [Suspect]
     Indication: CHRONIC HEPATITIS C
     Route: 058
     Dates: start: 20121226, end: 20130621
  2. PEGASYS [Suspect]
     Route: 058
     Dates: start: 2011
  3. PEGASYS [Suspect]
     Route: 065
     Dates: start: 20100722, end: 20110608
  4. RIBAVIRIN [Suspect]
     Indication: CHRONIC HEPATITIS C
     Dosage: 1000 MG PER DAY IN DIVIDED DOSES
     Route: 048
     Dates: start: 20121226, end: 20130621
  5. RIBAVIRIN [Suspect]
     Dosage: DOSE REDUCED 200/400
     Route: 048
  6. RIBAVIRIN [Suspect]
     Route: 065
     Dates: start: 20100722, end: 20110608
  7. TELAPREVIR [Suspect]
     Indication: CHRONIC HEPATITIS C
     Route: 065
     Dates: start: 20121226, end: 20130621
  8. RIBASPHERE [Suspect]
     Indication: CHRONIC HEPATITIS C
     Dosage: DIVIDED DOSES PER DAY
     Route: 048
     Dates: start: 2011

REACTIONS (13)
  - Dyspnoea [Unknown]
  - Hepatitis C [Unknown]
  - Arthralgia [Unknown]
  - Agitation [Unknown]
  - Restlessness [Unknown]
  - Fatigue [Unknown]
  - Pruritus [Unknown]
  - Red blood cell count decreased [Unknown]
  - Pain [Unknown]
  - Spinal pain [Unknown]
  - Muscle spasms [Unknown]
  - Anxiety [Unknown]
  - Fatigue [Unknown]
